FAERS Safety Report 20745267 (Version 1)
Quarter: 2022Q2

REPORT INFORMATION
  Report Type: Spontaneous
  Country: US (occurrence: None)
  Receive Date: 20220422
  Receipt Date: 20220422
  Transmission Date: 20220721
  Serious: Yes (Disabling)
  Sender: FDA-Public Use
  Company Number: None

PATIENT
  Age: 61 Year
  Sex: Male
  Weight: 108 kg

DRUGS (8)
  1. MODAFINIL [Suspect]
     Active Substance: MODAFINIL
     Indication: Fatigue
     Dosage: FREQUENCY : DAILY;?
     Route: 048
     Dates: start: 20170120
  2. MODAFINIL [Suspect]
     Active Substance: MODAFINIL
     Indication: Sleep apnoea syndrome
  3. insulins [Concomitant]
  4. DIABETES [Concomitant]
  5. UNSPECIFIED INGREDIENT [Concomitant]
     Active Substance: UNSPECIFIED INGREDIENT
  6. high blood pressure meds [Concomitant]
  7. VITAMINS [Concomitant]
     Active Substance: VITAMINS
  8. PROBIOTICS NOS [Concomitant]
     Active Substance: PROBIOTICS NOS

REACTIONS (8)
  - Product physical issue [None]
  - Incorrect dose administered [None]
  - Product complaint [None]
  - Manufacturing product shipping issue [None]
  - Fatigue [None]
  - Product dispensing error [None]
  - Product packaging quantity issue [None]
  - Product packaging issue [None]

NARRATIVE: CASE EVENT DATE: 20220421
